FAERS Safety Report 8167824-9 (Version None)
Quarter: 2012Q1

REPORT INFORMATION
  Report Type: 
  Country: None (occurrence: None)
  Receive Date: 20120222
  Receipt Date: 20110912
  Transmission Date: 20120608
  Serious: No
  Sender: FDA-Public Use
  Company Number: NXG-12-001

PATIENT
  Sex: Male

DRUGS (1)
  1. POLYETHYLENE GLYCOL 3350 [Suspect]
     Dosage: 17G DOSES/28-30 TIMES

REACTIONS (2)
  - HAEMATOCHEZIA [None]
  - UNEVALUABLE EVENT [None]
